FAERS Safety Report 18392321 (Version 1)
Quarter: 2020Q4

REPORT INFORMATION
  Report Type: Spontaneous
  Country: US (occurrence: US)
  Receive Date: 20201016
  Receipt Date: 20201016
  Transmission Date: 20210114
  Serious: Yes (Death)
  Sender: FDA-Public Use
  Company Number: US-MYLANLABS-2020M1087331

PATIENT
  Age: 62 Year
  Sex: Male

DRUGS (2)
  1. CYTARABINE. [Suspect]
     Active Substance: CYTARABINE
     Indication: ACUTE MYELOID LEUKAEMIA
     Dosage: (CYTARABINE PLUS DAUNORUBICIN; 7 + 3 REGIMEN)
     Route: 065
  2. DAUNORUBICIN [Suspect]
     Active Substance: DAUNORUBICIN
     Indication: ACUTE MYELOID LEUKAEMIA
     Dosage: (CYTARABINE PLUS DAUNORUBICIN; 7 + 3 REGIMEN)
     Route: 065

REACTIONS (2)
  - Haemorrhage intracranial [Fatal]
  - Acute megakaryocytic leukaemia [Fatal]
